FAERS Safety Report 20297352 (Version 1)
Quarter: 2022Q1

REPORT INFORMATION
  Report Type: Spontaneous
  Country: US (occurrence: None)
  Receive Date: 20220105
  Receipt Date: 20220105
  Transmission Date: 20220424
  Serious: No
  Sender: FDA-Public Use
  Company Number: US-ROCHE-2871675

PATIENT
  Sex: Female

DRUGS (1)
  1. HEMLIBRA [Suspect]
     Active Substance: EMICIZUMAB-KXWH
     Indication: Factor VIII deficiency
     Dosage: DOSE : 255 MG/1.7 ML?STRENGTH : 150 MG/ML
     Route: 058
     Dates: start: 20210607

REACTIONS (1)
  - Haemorrhage [Unknown]
